FAERS Safety Report 25990958 (Version 4)
Quarter: 2025Q4

REPORT INFORMATION
  Report Type: Spontaneous
  Country: US (occurrence: US)
  Receive Date: 20251103
  Receipt Date: 20251221
  Transmission Date: 20260117
  Serious: Yes (Other)
  Sender: APELLIS PHARMACEUTICALS
  Company Number: US-APELLIS-2025-APL-0002060

PATIENT

DRUGS (12)
  1. SYFOVRE [Suspect]
     Active Substance: PEGCETACOPLAN
     Indication: Dry age-related macular degeneration
     Dosage: OD
     Dates: start: 20190522
  2. SYFOVRE [Suspect]
     Active Substance: PEGCETACOPLAN
     Indication: Dry age-related macular degeneration
     Dosage: EVERY 8 WEEKS, OU
     Route: 065
     Dates: start: 20240816
  3. Artificial tears [Concomitant]
     Indication: Product used for unknown indication
     Dosage: INSTILL 1 GTT PRN OU
     Dates: start: 20170510
  4. LATANOPROST [Concomitant]
     Active Substance: LATANOPROST
     Indication: Product used for unknown indication
     Dates: start: 20160918
  5. PATADAY [Concomitant]
     Active Substance: OLOPATADINE HYDROCHLORIDE
     Indication: Product used for unknown indication
     Dosage: 1 DROP BY OPHTHALMIC
     Dates: start: 20211024
  6. AMLODIPINE [Concomitant]
     Active Substance: AMLODIPINE BESYLATE
     Indication: Product used for unknown indication
     Dates: start: 20160918
  7. CLONAZEPAM [Concomitant]
     Active Substance: CLONAZEPAM
     Indication: Product used for unknown indication
     Dosage: 2MG, TID, ORAL
     Dates: start: 20180621
  8. CIALIS [Concomitant]
     Active Substance: TADALAFIL
     Indication: Product used for unknown indication
     Dates: start: 20160918
  9. LOSARTAN [Concomitant]
     Active Substance: LOSARTAN
     Indication: Product used for unknown indication
     Dates: start: 20160918
  10. SIMVASTATIN [Concomitant]
     Active Substance: SIMVASTATIN
     Indication: Product used for unknown indication
     Dates: start: 20160919
  11. SYSTANE (HYPROMELLOSE 2910 (4000 MPA.S)) [Concomitant]
     Active Substance: HYPROMELLOSE 2910 (4000 MPA.S)
     Indication: Product used for unknown indication
  12. IVIZIA DRY EYE [Concomitant]
     Active Substance: POVIDONE
     Indication: Product used for unknown indication

REACTIONS (14)
  - Vitritis [Recovering/Resolving]
  - Vitritis [Recovering/Resolving]
  - Posterior capsule opacification [Not Recovered/Not Resolved]
  - Posterior capsule opacification [Not Recovered/Not Resolved]
  - Retinal oedema [Recovered/Resolved]
  - Iridocyclitis [Recovering/Resolving]
  - Iridocyclitis [Recovering/Resolving]
  - Vitreous opacities [Not Recovered/Not Resolved]
  - Vitreous opacities [Not Recovered/Not Resolved]
  - Vitreous disorder [Recovering/Resolving]
  - Vitreous disorder [Recovering/Resolving]
  - Chorioretinal scar [Not Recovered/Not Resolved]
  - Vitreous floaters [Unknown]
  - Vitreous floaters [Unknown]

NARRATIVE: CASE EVENT DATE: 20251019
